FAERS Safety Report 7986632-2 (Version None)
Quarter: 2011Q4

REPORT INFORMATION
  Report Type: 
  Country: None (occurrence: None)
  Receive Date: 20111216
  Receipt Date: 20110209
  Transmission Date: 20120403
  Serious: No
  Sender: FDA-Public Use
  Company Number: US-BRISTOL-MYERS SQUIBB COMPANY-15541097

PATIENT
  Age: 23 Year

DRUGS (1)
  1. ABILIFY [Suspect]
     Dosage: ALSO TAKEN 5MG AND 10MG.
     Dates: start: 20110101, end: 20110201

REACTIONS (1)
  - AKATHISIA [None]
